FAERS Safety Report 9506617 (Version 3)
Quarter: 2014Q1

REPORT INFORMATION
  Report Type: Spontaneous
  Country: DE (occurrence: DE)
  Receive Date: 20130907
  Receipt Date: 20140108
  Transmission Date: 20141002
  Serious: Yes (Other)
  Sender: FDA-Public Use
  Company Number: DE-MERCK-1307DEU015001

PATIENT
  Age: 55 Year
  Sex: Female
  Weight: 90 kg

DRUGS (4)
  1. SYCREST [Suspect]
     Indication: MANIA
     Dosage: 10 MG, BID
     Route: 060
     Dates: start: 20111108
  2. LEPONEX [Concomitant]
     Indication: SCHIZOAFFECTIVE DISORDER BIPOLAR TYPE
     Dosage: 400 MG, UNK
     Route: 048
     Dates: start: 2007
  3. VALPROIC ACID [Concomitant]
     Indication: SCHIZOAFFECTIVE DISORDER BIPOLAR TYPE
     Dosage: 2000 MG
     Route: 048
  4. METFORMIN [Concomitant]
     Dosage: 2000 MG
     Route: 048

REACTIONS (3)
  - Mania [Recovered/Resolved]
  - Incorrect route of drug administration [Recovered/Resolved]
  - Product taste abnormal [Unknown]
